FAERS Safety Report 20630525 (Version 1)
Quarter: 2022Q1

REPORT INFORMATION
  Report Type: Spontaneous
  Country: DE (occurrence: DE)
  Receive Date: 20220324
  Receipt Date: 20220324
  Transmission Date: 20220423
  Serious: Yes (Other)
  Sender: FDA-Public Use
  Company Number: DE-KRKA-AT2022K02737SPO

PATIENT
  Age: 42 Year
  Sex: Female
  Weight: 61 kg

DRUGS (8)
  1. LAMOTRIGINE [Suspect]
     Active Substance: LAMOTRIGINE
     Indication: Epilepsy
     Dosage: 200 MILLIGRAM, ONCE A DAY (100 MG TWICE A DAY)
     Route: 048
  2. NEUPRO [Interacting]
     Active Substance: ROTIGOTINE
     Indication: Paraesthesia
     Dosage: 2 MILLIGRAM, ONCE A DAY
     Route: 062
     Dates: start: 202111, end: 202111
  3. NEUPRO [Interacting]
     Active Substance: ROTIGOTINE
     Indication: Restless legs syndrome
     Dosage: 2 MILLIGRAM, ONCE A DAY
     Route: 062
     Dates: start: 20220114, end: 20220116
  4. LEVETIRACETAM [Interacting]
     Active Substance: LEVETIRACETAM
     Indication: Epilepsy
     Dosage: 1000 MILLIGRAM, ONCE A DAY (500 MG TWICE A DAY)
     Route: 048
  5. COMIRNATY [Suspect]
     Active Substance: TOZINAMERAN
     Indication: COVID-19
     Dosage: UNK (SINGLE DOSE)
     Route: 065
     Dates: start: 20220101, end: 20220101
  6. COMIRNATY [Suspect]
     Active Substance: TOZINAMERAN
     Indication: Prophylaxis
  7. VAXZEVRIA [Concomitant]
     Active Substance: AZD-1222
     Indication: COVID-19
     Dosage: UNK (SINGLE DOSE)
     Route: 065
  8. VAXZEVRIA [Concomitant]
     Active Substance: AZD-1222
     Indication: Prophylaxis
     Dosage: UNK (SINGLE DOSE)
     Route: 065

REACTIONS (5)
  - Nausea [Unknown]
  - Paraesthesia [Unknown]
  - Epilepsy [Unknown]
  - Drug interaction [Unknown]
  - Drug ineffective [Unknown]

NARRATIVE: CASE EVENT DATE: 20211101
